FAERS Safety Report 14004841 (Version 2)
Quarter: 2017Q4

REPORT INFORMATION
  Report Type: Spontaneous
  Country: US (occurrence: US)
  Receive Date: 20170922
  Receipt Date: 20171121
  Transmission Date: 20180321
  Serious: No
  Sender: FDA-Public Use
  Company Number: US-PFIZER INC-2017409478

PATIENT
  Age: 45 Year
  Sex: Male
  Weight: 82.55 kg

DRUGS (29)
  1. RAPAMUNE [Suspect]
     Active Substance: SIROLIMUS
     Indication: PROPHYLAXIS AGAINST TRANSPLANT REJECTION
     Dosage: 2 MG, ALTERNATE DAY
     Route: 048
     Dates: start: 20150828
  2. MINOXIDIL. [Concomitant]
     Active Substance: MINOXIDIL
     Indication: RENAL TRANSPLANT
     Dosage: 10 MG, 2X/DAY
     Route: 048
     Dates: start: 2001
  3. K-TAB [Concomitant]
     Active Substance: POTASSIUM CHLORIDE
     Dosage: 10 MEQ, 2X/DAY
     Route: 048
     Dates: start: 20171019
  4. PANTOPRAZOLE [Concomitant]
     Active Substance: PANTOPRAZOLE
     Indication: GASTROOESOPHAGEAL REFLUX DISEASE
     Dosage: 40 MG, 1X/DAY
     Route: 048
     Dates: start: 2001
  5. PROTONIX [Concomitant]
     Active Substance: PANTOPRAZOLE SODIUM
     Dosage: 40 MG, DAILY
     Route: 048
     Dates: start: 20171019
  6. BUMEX [Concomitant]
     Active Substance: BUMETANIDE
     Dosage: 1 MG, 2X/DAY
     Route: 048
     Dates: start: 20171019
  7. INSPRA [Concomitant]
     Active Substance: EPLERENONE
     Dosage: 50 MG, 2X/DAY
     Route: 048
     Dates: start: 20161221
  8. BUMETANIDE. [Concomitant]
     Active Substance: BUMETANIDE
     Indication: RENAL TRANSPLANT
     Dosage: 1 DF, 2X/DAY
     Route: 048
     Dates: start: 2001
  9. K-TAB [Concomitant]
     Active Substance: POTASSIUM CHLORIDE
     Indication: MINERAL SUPPLEMENTATION
     Dosage: 10 MEQ, 2X/DAY
     Route: 048
     Dates: start: 2001
  10. K-TAB [Concomitant]
     Active Substance: POTASSIUM CHLORIDE
     Dosage: 20 MEQ, 2X/DAY
     Route: 048
     Dates: start: 20170508
  11. LIPITOR [Concomitant]
     Active Substance: ATORVASTATIN CALCIUM
     Dosage: 20 MG, DAILY
     Route: 048
     Dates: start: 20170413
  12. PREDNISONE. [Concomitant]
     Active Substance: PREDNISONE
     Indication: RENAL TRANSPLANT
     Dosage: 5 MG, 1X/DAY
     Route: 048
     Dates: start: 2001
  13. EPLERENONE. [Concomitant]
     Active Substance: EPLERENONE
     Indication: RENAL TRANSPLANT
     Dosage: 50 MG, 2X/DAY
     Route: 048
     Dates: start: 2001
  14. EPLERENONE. [Concomitant]
     Active Substance: EPLERENONE
     Indication: DIURETIC THERAPY
  15. CELLCEPT [Concomitant]
     Active Substance: MYCOPHENOLATE MOFETIL\MYCOPHENOLATE MOFETIL HYDROCHLORIDE
     Dosage: 750 MG, 2X/DAY
     Route: 048
     Dates: start: 20171019
  16. RAPAMUNE [Suspect]
     Active Substance: SIROLIMUS
     Dosage: 1 MG, ALTERNATE DAY
     Route: 048
     Dates: start: 20150828
  17. AMOXIL [Concomitant]
     Active Substance: AMOXICILLIN
     Indication: TRANSPLANT
     Dosage: UNK, [TAKE 2 TABS ONE HR PRIOR TO PROCEDURE THEN 500 MG EVERY 8 HRS AFTER PROCEDURE X 2]
     Dates: start: 20170512
  18. DURICEF [Concomitant]
     Active Substance: CEFADROXIL
     Dosage: 500 MG, 2X/DAY
     Route: 048
     Dates: start: 20170126
  19. CARDURA [Concomitant]
     Active Substance: DOXAZOSIN MESYLATE
     Dosage: 4 MG, 2X/DAY
     Route: 048
     Dates: start: 20170324
  20. RAPAMUNE [Suspect]
     Active Substance: SIROLIMUS
     Indication: RENAL TRANSPLANT
     Dosage: 1 MG, 1X/DAY(1MG ONCE A DAY BY MOUTH)
     Route: 048
     Dates: start: 2001
  21. CARVEDILOL. [Concomitant]
     Active Substance: CARVEDILOL
     Indication: HYPERTENSION
     Dosage: 1 DF, 2X/DAY
     Route: 048
     Dates: start: 2001
  22. DOXAZOSIN [Concomitant]
     Active Substance: DOXAZOSIN\DOXAZOSIN MESYLATE
     Indication: HYPERTENSION
     Dosage: 4 MG, 2X/DAY
     Route: 048
     Dates: start: 2001
  23. ATORVASTATIN [Concomitant]
     Active Substance: ATORVASTATIN
     Indication: BLOOD CHOLESTEROL INCREASED
     Dosage: 20 MG, 1X/DAY
     Route: 048
  24. LONITEN [Concomitant]
     Active Substance: MINOXIDIL
     Dosage: 10 MG, 2X/DAY
     Route: 048
     Dates: start: 20171019
  25. CARDURA [Concomitant]
     Active Substance: DOXAZOSIN MESYLATE
     Dosage: 4 MG, 2X/DAY
     Route: 048
     Dates: start: 20171019
  26. MYCOPHENOLATE [Concomitant]
     Active Substance: MYCOPHENOLIC ACID
     Indication: RENAL TRANSPLANT
     Dosage: 3 DF, 2X/DAY
     Route: 048
     Dates: start: 2001
  27. METROGEL [Concomitant]
     Active Substance: METRONIDAZOLE
     Dosage: UNK UNK, 2X/DAY
     Route: 061
     Dates: start: 20151103
  28. DELTASONE [Concomitant]
     Active Substance: PREDNISONE
     Indication: PROPHYLAXIS AGAINST TRANSPLANT REJECTION
     Dosage: 5 MG, DAILY
     Route: 048
     Dates: start: 20171019
  29. COREG [Concomitant]
     Active Substance: CARVEDILOL
     Dosage: 12.5 MG, 2X/DAY
     Route: 048
     Dates: start: 20171019

REACTIONS (2)
  - Nasal congestion [Not Recovered/Not Resolved]
  - Drug hypersensitivity [Not Recovered/Not Resolved]

NARRATIVE: CASE EVENT DATE: 20170920
